FAERS Safety Report 14228184 (Version 2)
Quarter: 2017Q4

REPORT INFORMATION
  Report Type: Spontaneous
  Country: CN (occurrence: CN)
  Receive Date: 20171127
  Receipt Date: 20171214
  Transmission Date: 20180321
  Serious: Yes (Other)
  Sender: FDA-Public Use
  Company Number: CN-IMPAX LABORATORIES, INC-2017-IPXL-03390

PATIENT
  Age: 75 Year
  Sex: Female

DRUGS (2)
  1. ALBENZA [Suspect]
     Active Substance: ALBENDAZOLE
     Indication: PARASITIC GASTROENTERITIS
     Dosage: 0.2 G, 2 TABLET ONCE
     Route: 048
     Dates: start: 20171110
  2. METOPROLOL. [Suspect]
     Active Substance: METOPROLOL
     Indication: EXTRASYSTOLES
     Dosage: UNK
     Route: 048

REACTIONS (3)
  - Helminthic infection [Recovered/Resolved]
  - Dry mouth [Unknown]
  - Stool analysis normal [Unknown]

NARRATIVE: CASE EVENT DATE: 201711
